FAERS Safety Report 14186334 (Version 1)
Quarter: 2017Q4

REPORT INFORMATION
  Report Type: Spontaneous
  Country: US (occurrence: US)
  Receive Date: 20171114
  Receipt Date: 20171114
  Transmission Date: 20180321
  Serious: No
  Sender: FDA-Public Use
  Company Number: US-009507513-1710USA008354

PATIENT
  Age: 76 Year
  Sex: Female

DRUGS (6)
  1. JANUMET [Suspect]
     Active Substance: METFORMIN HYDROCHLORIDE\SITAGLIPTIN PHOSPHATE
     Indication: TYPE 2 DIABETES MELLITUS
     Dosage: 50/1000 MG TWICE A DAY
     Route: 048
     Dates: start: 2017
  2. INFLUENZA VIRUS VACCINE INACTIVATED (UNSPECIFIED) [Suspect]
     Active Substance: INFLUENZA VIRUS VACCINE
     Indication: PROPHYLAXIS
     Dosage: UNK
     Dates: start: 20171012
  3. AMLODIPINE [Concomitant]
     Active Substance: AMLODIPINE BESYLATE
  4. ROSUVASTATIN. [Concomitant]
     Active Substance: ROSUVASTATIN
  5. PANTOPRAZOLE [Concomitant]
     Active Substance: PANTOPRAZOLE
     Indication: DISCOMFORT
  6. JANUMET [Suspect]
     Active Substance: METFORMIN HYDROCHLORIDE\SITAGLIPTIN PHOSPHATE
     Dosage: UNK
     Route: 048

REACTIONS (10)
  - Blood glucose abnormal [Unknown]
  - Malaise [Unknown]
  - Pain in extremity [Unknown]
  - Oropharyngeal pain [Unknown]
  - Adverse event [Unknown]
  - Anaemia [Unknown]
  - Cough [Unknown]
  - Product taste abnormal [Unknown]
  - Headache [Unknown]
  - Product size issue [Unknown]

NARRATIVE: CASE EVENT DATE: 20171013
